FAERS Safety Report 6172246-6 (Version None)
Quarter: 2009Q2

REPORT INFORMATION
  Report Type: 
  Country: None (occurrence: None)
  Receive Date: 20090427
  Receipt Date: 20090427
  Transmission Date: 20091009
  Serious: Yes (Other)
  Sender: FDA-Public Use
  Company Number: None

PATIENT
  Age: 11 Month
  Sex: Female
  Weight: 5 kg

DRUGS (1)
  1. CONCENTRATED MOTRIN INFANTS' INFANTS' DROPS -DYE-FREE- MCNEILL/JOHNSON [Suspect]
     Indication: PYREXIA
     Dosage: PO
     Route: 048

REACTIONS (2)
  - ACCIDENTAL EXPOSURE [None]
  - THROAT IRRITATION [None]
